FAERS Safety Report 4914327-8 (Version None)
Quarter: 2006Q1

REPORT INFORMATION
  Report Type: 
  Country: None (occurrence: None)
  Receive Date: 20060213
  Receipt Date: 20060126
  Transmission Date: 20060701
  Serious: Yes (Other)
  Sender: FDA-Public Use
  Company Number: TRP_0699_2006

PATIENT
  Age: 50 Year
  Sex: Female
  Weight: 126.1 kg

DRUGS (5)
  1. RIBASPHERE/RIBAVIRIN/THREE RIVERS PHARMA/200 MG [Suspect]
     Indication: HEPATITIS C
     Dosage: 400 MG BID PO
     Route: 048
     Dates: start: 20050916
  2. PEG-INTRON [Suspect]
     Indication: HEPATITIS C
     Dosage: 150 MCG QWK SC
     Route: 058
     Dates: start: 20050916
  3. BACLOFEN [Concomitant]
  4. NORCO (325-10MG) [Concomitant]
  5. ZANTAC [Concomitant]

REACTIONS (5)
  - ADIPOSIS DOLOROSA [None]
  - NAUSEA [None]
  - PAIN [None]
  - SKIN LESION [None]
  - VOMITING [None]
